FAERS Safety Report 17346310 (Version 1)
Quarter: 2020Q1

REPORT INFORMATION
  Report Type: Spontaneous
  Country: US (occurrence: US)
  Receive Date: 20200129
  Receipt Date: 20200129
  Transmission Date: 20200409
  Serious: No
  Sender: FDA-Public Use
  Company Number: None

PATIENT
  Age: 43 Year
  Sex: Female

DRUGS (1)
  1. AJOVY [Suspect]
     Active Substance: FREMANEZUMAB-VFRM
     Indication: MIGRAINE
     Dosage: ?          OTHER FREQUENCY:MONTHLY INJECTION;?
     Route: 058
     Dates: start: 20190926, end: 20191120

REACTIONS (5)
  - Menstrual disorder [None]
  - Injection site vesicles [None]
  - Injection site pruritus [None]
  - Blood urine present [None]
  - Rash [None]

NARRATIVE: CASE EVENT DATE: 20190926
